FAERS Safety Report 4354815-9 (Version None)
Quarter: 2004Q2

REPORT INFORMATION
  Report Type: 
  Country: None (occurrence: None)
  Receive Date: 20040507
  Receipt Date: 20040309
  Transmission Date: 20050107
  Serious: Yes (Other)
  Sender: FDA-Public Use
  Company Number: US-ROCHE-361052

PATIENT
  Sex: Female

DRUGS (4)
  1. ACCUTANE [Suspect]
     Dosage: DOSAGE REPORTED AS: 40MG.
     Route: 048
     Dates: start: 20031215
  2. ACCUTANE [Suspect]
     Dosage: DOSAGE REPORTED AS: 20MG.
     Route: 048
  3. ACCUTANE [Suspect]
     Dosage: DOSAGE REPORTED AS: 40MG.
     Route: 048
  4. ACCUTANE [Suspect]
     Dosage: DOSAGE REPORTED AS: 60MG.
     Route: 048
     Dates: start: 20040315

REACTIONS (9)
  - ACNE [None]
  - ANGER [None]
  - CONDITION AGGRAVATED [None]
  - DERMATITIS EXFOLIATIVE [None]
  - DIZZINESS [None]
  - ERYTHEMA [None]
  - HEADACHE [None]
  - SUICIDAL IDEATION [None]
  - SWELLING FACE [None]
